FAERS Safety Report 23547927 (Version 2)
Quarter: 2024Q1

REPORT INFORMATION
  Report Type: Spontaneous
  Country: FR (occurrence: None)
  Receive Date: 20240221
  Receipt Date: 20240304
  Transmission Date: 20240410
  Serious: Yes (Life-Threatening, Other)
  Sender: FDA-Public Use
  Company Number: 2024A042994

PATIENT
  Age: 5 Month
  Sex: Female
  Weight: 5 kg

DRUGS (1)
  1. BEYFORTUS [Suspect]
     Active Substance: NIRSEVIMAB-ALIP
     Indication: Respiratory syncytial virus immunisation
     Dosage: 1 DF (1 INJECTION OF 50 MG, 1X)
     Dates: start: 20230916, end: 20230916

REACTIONS (2)
  - Respiratory syncytial virus bronchiolitis [Not Recovered/Not Resolved]
  - Drug ineffective [Unknown]

NARRATIVE: CASE EVENT DATE: 20231203
